FAERS Safety Report 5201807-3 (Version None)
Quarter: 2006Q4

REPORT INFORMATION
  Report Type: 
  Country: None (occurrence: None)
  Receive Date: 20061002
  Receipt Date: 20051104
  Transmission Date: 20070319
  Serious: Yes (Other)
  Sender: FDA-Public Use
  Company Number: US-JNJFOC-20051004376

PATIENT
  Age: 18 Year
  Sex: Male

DRUGS (1)
  1. ULTRACET [Suspect]
     Indication: SURGERY
     Dates: start: 20050901

REACTIONS (1)
  - CONVULSION [None]
